FAERS Safety Report 7654471-8 (Version None)
Quarter: 2011Q3

REPORT INFORMATION
  Report Type: 
  Country: None (occurrence: None)
  Receive Date: 20110803
  Receipt Date: 20110725
  Transmission Date: 20111222
  Serious: Yes (Hospitalization)
  Sender: FDA-Public Use
  Company Number: BR-ASTRAZENECA-2011SE44793

PATIENT
  Age: 74 Year
  Sex: Female
  Weight: 54 kg

DRUGS (3)
  1. ATENOLOL [Suspect]
     Route: 048
     Dates: start: 20010101, end: 20110101
  2. CRESTOR [Suspect]
     Indication: HYPERCHOLESTEROLAEMIA
     Route: 048
     Dates: start: 20080101
  3. ENALAPRIL MALEATE [Concomitant]
     Route: 048
     Dates: start: 20110101

REACTIONS (2)
  - ARRHYTHMIA [None]
  - BLOOD GLUCOSE INCREASED [None]
